FAERS Safety Report 5986771-1 (Version None)
Quarter: 2008Q4

REPORT INFORMATION
  Report Type: 
  Country: None (occurrence: None)
  Receive Date: 20081209
  Receipt Date: 20080905
  Transmission Date: 20090506
  Serious: No
  Sender: FDA-Public Use
  Company Number: US-AMGEN-KDL306145

PATIENT
  Sex: Female

DRUGS (2)
  1. ENBREL [Suspect]
     Indication: PSORIASIS
     Route: 058
  2. ENBREL [Suspect]
     Indication: OSTEOARTHRITIS

REACTIONS (7)
  - EAR INFECTION [None]
  - FATIGUE [None]
  - FIBROMYALGIA [None]
  - OSTEOARTHRITIS [None]
  - PRURITUS [None]
  - PSORIASIS [None]
  - TINNITUS [None]
